FAERS Safety Report 14486363 (Version 1)
Quarter: 2018Q1

REPORT INFORMATION
  Report Type: Spontaneous
  Country: US (occurrence: US)
  Receive Date: 20180203
  Receipt Date: 20180203
  Transmission Date: 20180509
  Serious: Yes (Other)
  Sender: FDA-Public Use
  Company Number: None

PATIENT
  Age: 71 Year
  Sex: Female

DRUGS (1)
  1. ESTRADIOL. [Suspect]
     Active Substance: ESTRADIOL
     Dosage: ?          OTHER FREQUENCY:QOD;?
     Route: 067
     Dates: start: 20180202, end: 20180202

REACTIONS (4)
  - Injury associated with device [None]
  - Vaginal laceration [None]
  - Vaginal haemorrhage [None]
  - Device issue [None]

NARRATIVE: CASE EVENT DATE: 20180202
